FAERS Safety Report 7957478-6 (Version None)
Quarter: 2011Q4

REPORT INFORMATION
  Report Type: 
  Country: None (occurrence: None)
  Receive Date: 20111205
  Receipt Date: 20111123
  Transmission Date: 20120403
  Serious: Yes (Hospitalization, Congenital Anomaly)
  Sender: FDA-Public Use
  Company Number: US-GLAXOSMITHKLINE-A0765947A

PATIENT
  Sex: Male

DRUGS (3)
  1. PAXIL [Suspect]
     Indication: PRODUCT USED FOR UNKNOWN INDICATION
     Route: 064
  2. PAXIL CR [Suspect]
     Indication: PRODUCT USED FOR UNKNOWN INDICATION
     Dosage: 12.5MG UNKNOWN
     Route: 064
  3. VITAMIN TAB [Concomitant]
     Route: 064

REACTIONS (6)
  - AORTICOPULMONARY SEPTAL DEFECT [None]
  - FOETAL EXPOSURE DURING PREGNANCY [None]
  - DOUBLE OUTLET RIGHT VENTRICLE [None]
  - MATERNAL DRUGS AFFECTING FOETUS [None]
  - VENTRICULAR SEPTAL DEFECT [None]
  - ATRIAL SEPTAL DEFECT [None]
